FAERS Safety Report 14840168 (Version 1)
Quarter: 2018Q2

REPORT INFORMATION
  Report Type: Spontaneous
  Country: ES (occurrence: ES)
  Receive Date: 20180503
  Receipt Date: 20180503
  Transmission Date: 20180711
  Serious: Yes (Hospitalization)
  Sender: FDA-Public Use
  Company Number: ES-TEVA-2018-ES-886767

PATIENT
  Age: 66 Year
  Sex: Female

DRUGS (1)
  1. CLARITROMICINA 500 MG 14 TABLETS [Suspect]
     Active Substance: CLARITHROMYCIN
     Indication: HELICOBACTER GASTRITIS
     Dates: start: 20180216

REACTIONS (3)
  - Oropharyngeal discomfort [Unknown]
  - Swollen tongue [Unknown]
  - Palmar erythema [Unknown]

NARRATIVE: CASE EVENT DATE: 20180216
